FAERS Safety Report 18451104 (Version 2)
Quarter: 2020Q4

REPORT INFORMATION
  Report Type: Spontaneous
  Country: DE (occurrence: DE)
  Receive Date: 20201102
  Receipt Date: 20201211
  Transmission Date: 20210114
  Serious: Yes (Death, Other)
  Sender: FDA-Public Use
  Company Number: DE-LUPIN PHARMACEUTICALS INC.-2020-08081

PATIENT
  Age: 31 Year
  Sex: Female

DRUGS (17)
  1. DIAZEPAM. [Suspect]
     Active Substance: DIAZEPAM
     Indication: DRUG ABUSE
     Dosage: UNK
     Route: 065
  2. ETORICOXIB. [Suspect]
     Active Substance: ETORICOXIB
     Indication: DRUG ABUSE
     Dosage: UNK
     Route: 048
  3. OPIPRAMOL [Suspect]
     Active Substance: OPIPRAMOL
     Indication: DRUG ABUSE
     Dosage: UNK
     Route: 048
  4. TETRAZEPAM [Suspect]
     Active Substance: TETRAZEPAM
     Indication: DRUG ABUSE
     Dosage: UNK
     Route: 048
  5. MORPHINE [Suspect]
     Active Substance: MORPHINE
     Indication: DRUG ABUSE
     Dosage: UNK
     Route: 048
  6. DIPHENHYDRAMINE. [Suspect]
     Active Substance: DIPHENHYDRAMINE
     Indication: DRUG ABUSE
     Dosage: UNK
     Route: 048
  7. BENZOYLECGONINE [Suspect]
     Active Substance: BENZOYLECGONINE
     Indication: DRUG ABUSE
     Dosage: UNK
     Route: 048
  8. ALCOHOL. [Suspect]
     Active Substance: ALCOHOL
     Indication: DRUG ABUSE
     Dosage: UNK
     Route: 048
  9. METHADONE [Suspect]
     Active Substance: METHADONE HYDROCHLORIDE
     Indication: DRUG ABUSE
     Dosage: UNK
     Route: 048
  10. TETRAMISOLE [Suspect]
     Active Substance: TETRAMISOLE
     Indication: DRUG ABUSE
     Dosage: UNK
     Route: 048
  11. CODEINE [Suspect]
     Active Substance: CODEINE
     Indication: DRUG ABUSE
     Dosage: UNK
     Route: 048
  12. NORDAZEPAM [Suspect]
     Active Substance: NORDAZEPAM
     Indication: DRUG ABUSE
     Dosage: UNK
     Route: 048
  13. COCAINE [Suspect]
     Active Substance: COCAINE
     Indication: DRUG ABUSE
     Dosage: UNK
     Route: 048
  14. TEMAZEPAM. [Suspect]
     Active Substance: TEMAZEPAM
     Indication: DRUG ABUSE
     Dosage: UNK
     Route: 048
  15. CAFFEINE. [Suspect]
     Active Substance: CAFFEINE
     Indication: DRUG ABUSE
     Dosage: UNK
     Route: 048
  16. CHLOROTHEOPHYLLINE [Suspect]
     Active Substance: CHLORTHEOPHYLLINE
     Indication: DRUG ABUSE
     Dosage: UNK
     Route: 048
  17. AMPHETAMINE [Suspect]
     Active Substance: AMPHETAMINE
     Indication: PRODUCT USED FOR UNKNOWN INDICATION
     Dosage: UNK
     Route: 065

REACTIONS (3)
  - Drug abuse [Unknown]
  - Suspected suicide [Fatal]
  - Toxicity to various agents [Fatal]

NARRATIVE: CASE EVENT DATE: 2013
